FAERS Safety Report 7408342-2 (Version None)
Quarter: 2011Q2

REPORT INFORMATION
  Report Type: 
  Country: None (occurrence: None)
  Receive Date: 20110412
  Receipt Date: 20110404
  Transmission Date: 20111010
  Serious: Yes (Other)
  Sender: FDA-Public Use
  Company Number: CA-SANOFI-AVENTIS-2011SA020467

PATIENT
  Sex: Female

DRUGS (1)
  1. KAYEXALATE [Suspect]
     Route: 048
     Dates: start: 20100831, end: 20100831

REACTIONS (5)
  - HEADACHE [None]
  - VOMITING [None]
  - SYNCOPE [None]
  - FEELING ABNORMAL [None]
  - FALL [None]
